FAERS Safety Report 12926613 (Version 1)
Quarter: 2016Q4

REPORT INFORMATION
  Report Type: Spontaneous
  Country: CN (occurrence: CN)
  Receive Date: 20161109
  Receipt Date: 20161109
  Transmission Date: 20170207
  Serious: Yes (Death, Other)
  Sender: FDA-Public Use
  Company Number: CN-APOPHARMA USA, INC.-2016AP014376

PATIENT
  Age: 49 Year
  Sex: Male

DRUGS (2)
  1. ALKERAN [Suspect]
     Active Substance: MELPHALAN
     Indication: MYXOEDEMA
     Dosage: 10 MG/M2, OTHER
     Route: 048
  2. DEXAMETHASONE. [Concomitant]
     Active Substance: DEXAMETHASONE
     Indication: MYXOEDEMA
     Dosage: 40 MG, QD
     Route: 048

REACTIONS (1)
  - Death [Fatal]
